FAERS Safety Report 8907204 (Version 1)
Quarter: 2012Q4

REPORT INFORMATION
  Report Type: 
  Country: US (occurrence: US)
  Receive Date: 20121113
  Receipt Date: 20121113
  Transmission Date: 20130627
  Serious: Yes (Other)
  Sender: FDA-Public Use
  Company Number: US-AMGEN-USASP2012010638

PATIENT
  Age: 64 Year
  Sex: Female
  Weight: 61 kg

DRUGS (11)
  1. ENBREL [Suspect]
     Indication: PRODUCT USED FOR UNKNOWN INDICATION
     Dosage: 50 mg, qwk
     Route: 058
  2. FOSAMAX [Concomitant]
     Dosage: 10 mg, UNK
  3. ISONIAZID [Concomitant]
     Dosage: 100 mg, UNK
  4. CRESTOR [Concomitant]
     Dosage: 10 mg, UNK
  5. LATANOPROST [Concomitant]
     Dosage: 0.005 %, UNK
  6. VITAMIN B COMPLEX [Concomitant]
  7. Q-10 CO-ENZYME [Concomitant]
     Dosage: UNK
  8. CALCIUM 500+D [Concomitant]
     Dosage: UNK
  9. ASA [Concomitant]
     Dosage: 81 mg, UNK
  10. VITAMIN D /00107901/ [Concomitant]
     Dosage: UNK
  11. PROBIOTIC [Concomitant]
     Dosage: UNK

REACTIONS (1)
  - Latent tuberculosis [Unknown]
